FAERS Safety Report 9248406 (Version 1)
Quarter: 2013Q2

REPORT INFORMATION
  Report Type: Spontaneous
  Country: FR (occurrence: FR)
  Receive Date: 20130423
  Receipt Date: 20130423
  Transmission Date: 20140414
  Serious: Yes (Hospitalization)
  Sender: FDA-Public Use
  Company Number: FR-SANOFI-AVENTIS-2013SA040509

PATIENT
  Age: 28 Year
  Sex: Female

DRUGS (15)
  1. LOVENOX [Suspect]
     Indication: PRODUCT USED FOR UNKNOWN INDICATION
     Route: 058
     Dates: start: 20130211, end: 20130318
  2. PROFENID [Suspect]
     Indication: PRODUCT USED FOR UNKNOWN INDICATION
     Route: 048
     Dates: start: 20130211, end: 20130216
  3. PROFENID [Suspect]
     Indication: PRODUCT USED FOR UNKNOWN INDICATION
     Route: 048
     Dates: start: 20130218, end: 20130220
  4. PROFENID [Suspect]
     Indication: PRODUCT USED FOR UNKNOWN INDICATION
     Route: 042
     Dates: start: 20130309, end: 20130318
  5. BRISTOPEN [Suspect]
     Indication: PRODUCT USED FOR UNKNOWN INDICATION
     Route: 042
     Dates: start: 20130221, end: 20130319
  6. OFLOCET [Concomitant]
     Dates: start: 20130224
  7. MORPHINE [Concomitant]
     Dosage: PARENTERAL NOS
  8. SKENAN [Concomitant]
  9. ZOLPIDEM [Concomitant]
  10. LYRICA [Concomitant]
  11. KARDEGIC [Concomitant]
     Route: 048
  12. FERROUS SULFATE [Concomitant]
     Route: 048
  13. TRIMEBUTINE [Concomitant]
  14. TRANSIPEG [Concomitant]
  15. PRIMPERAN [Concomitant]

REACTIONS (1)
  - Neutropenia [Recovered/Resolved]
